FAERS Safety Report 8817991 (Version 3)
Quarter: 2015Q2

REPORT INFORMATION
  Report Type: Report from Study
  Country: US (occurrence: US)
  Receive Date: 20121001
  Receipt Date: 20150630
  Transmission Date: 20150821
  Serious: Yes (Other)
  Sender: FDA-Public Use
  Company Number: US-ROCHE-1103715

PATIENT
  Sex: Female

DRUGS (29)
  1. HERCEPTIN [Suspect]
     Active Substance: TRASTUZUMAB
     Route: 042
     Dates: start: 20050518
  2. ZOFRAN [Concomitant]
     Active Substance: ONDANSETRON HYDROCHLORIDE
     Route: 065
  3. HALOTESTIN [Concomitant]
     Active Substance: FLUOXYMESTERONE
     Route: 065
  4. DECADRON [Concomitant]
     Active Substance: DEXAMETHASONE
     Route: 065
  5. AVASTIN [Suspect]
     Active Substance: BEVACIZUMAB
     Route: 042
  6. KYTRIL [Concomitant]
     Active Substance: GRANISETRON HYDROCHLORIDE
     Route: 065
  7. GEMCITABINE [Concomitant]
     Active Substance: GEMCITABINE\GEMCITABINE HYDROCHLORIDE
     Route: 065
  8. HERCEPTIN [Suspect]
     Active Substance: TRASTUZUMAB
     Route: 042
     Dates: start: 200806
  9. AVASTIN [Suspect]
     Active Substance: BEVACIZUMAB
     Indication: PRODUCT USED FOR UNKNOWN INDICATION
     Route: 042
     Dates: start: 200508
  10. TYLENOL [Concomitant]
     Active Substance: ACETAMINOPHEN
     Route: 048
  11. EMLA [Concomitant]
     Active Substance: LIDOCAINE\PRILOCAINE
  12. CEPHALEXIN. [Concomitant]
     Active Substance: CEPHALEXIN
     Route: 048
     Dates: start: 20070225
  13. DYAZIDE [Concomitant]
     Active Substance: HYDROCHLOROTHIAZIDE\TRIAMTERENE
     Dosage: 25/37.5MG DAILY
     Route: 065
  14. NAVELBINE [Concomitant]
     Active Substance: VINORELBINE TARTRATE
     Route: 065
     Dates: start: 2005
  15. COLACE [Concomitant]
     Active Substance: DOCUSATE SODIUM
     Route: 065
  16. PEPCID AC [Concomitant]
     Active Substance: FAMOTIDINE
     Route: 065
  17. HERCEPTIN [Suspect]
     Active Substance: TRASTUZUMAB
     Route: 042
     Dates: start: 20050629
  18. DARVOCET [Concomitant]
     Active Substance: ACETAMINOPHEN\PROPOXYPHENE HYDROCHLORIDE
     Dosage: 1 TO 2 EVERY 4 HRS WHEN NEEDED IN PAIN
     Route: 065
  19. AROMASIN [Concomitant]
     Active Substance: EXEMESTANE
     Route: 065
     Dates: start: 2004
  20. VITAMIN E [Concomitant]
     Active Substance: .ALPHA.-TOCOPHEROL
     Route: 065
  21. CELEBREX [Concomitant]
     Active Substance: CELECOXIB
     Route: 065
  22. HERCEPTIN [Suspect]
     Active Substance: TRASTUZUMAB
     Indication: BREAST CANCER FEMALE
     Route: 042
     Dates: start: 2004
  23. TARCEVA [Suspect]
     Active Substance: ERLOTINIB HYDROCHLORIDE
     Indication: BREAST CANCER FEMALE
     Dosage: EVERY OTHER DAY
     Route: 048
  24. BENADRYL [Concomitant]
     Active Substance: DIPHENHYDRAMINE HYDROCHLORIDE
     Route: 065
  25. FEMARA [Concomitant]
     Active Substance: LETROZOLE
     Dosage: EVERYDAY
     Route: 048
  26. METHOTREXATE [Concomitant]
     Active Substance: METHOTREXATE
     Route: 065
  27. DYAZIDE [Concomitant]
     Active Substance: HYDROCHLOROTHIAZIDE\TRIAMTERENE
     Dosage: 50-75 MG A DAY
     Route: 065
  28. ABRAXANE [Concomitant]
     Active Substance: PACLITAXEL
  29. PERCOCET [Concomitant]
     Active Substance: ACETAMINOPHEN\OXYCODONE HYDROCHLORIDE

REACTIONS (17)
  - Skin hyperpigmentation [Unknown]
  - Toothache [Unknown]
  - Arthralgia [Unknown]
  - Nausea [Unknown]
  - Spinal column stenosis [Unknown]
  - Off label use [Unknown]
  - Epistaxis [Unknown]
  - Hypertension [Unknown]
  - Pain [Unknown]
  - Vaginal discharge [Unknown]
  - Disease progression [Unknown]
  - Arthritis [Unknown]
  - Migraine [Unknown]
  - Breast discomfort [Unknown]
  - Headache [Recovered/Resolved]
  - Rash [Unknown]
  - Diarrhoea [Unknown]
